FAERS Safety Report 22886140 (Version 4)
Quarter: 2023Q4

REPORT INFORMATION
  Report Type: Report from Study
  Country: CA (occurrence: CA)
  Receive Date: 20230831
  Receipt Date: 20231227
  Transmission Date: 20240110
  Serious: Yes (Other)
  Sender: FDA-Public Use
  Company Number: CA-002147023-NVSC2022CA187129

PATIENT
  Age: 78 Year
  Sex: Female

DRUGS (2)
  1. ERELZI [Suspect]
     Active Substance: ETANERCEPT-SZZS
     Indication: Rheumatoid arthritis
     Dosage: 50 MG, Q3W
     Route: 058
     Dates: start: 20211103
  2. ERELZI [Suspect]
     Active Substance: ETANERCEPT-SZZS
     Dosage: 50 MG, Q4W, PRE-FILLED PEN
     Route: 058
     Dates: start: 20211103

REACTIONS (19)
  - Transient ischaemic attack [Unknown]
  - Pneumonia [Unknown]
  - Erythema [Unknown]
  - Oedema [Unknown]
  - Fatigue [Unknown]
  - Dizziness [Unknown]
  - Diplopia [Unknown]
  - Gait disturbance [Unknown]
  - Grip strength decreased [Unknown]
  - Anaemia [Unknown]
  - Balance disorder [Unknown]
  - Arthralgia [Unknown]
  - Fall [Unknown]
  - Peripheral swelling [Unknown]
  - Vision blurred [Unknown]
  - Confusional state [Unknown]
  - Pain [Unknown]
  - Asthenia [Unknown]
  - Off label use [Unknown]

NARRATIVE: CASE EVENT DATE: 20211103
